FAERS Safety Report 16032883 (Version 1)
Quarter: 2019Q1

REPORT INFORMATION
  Report Type: Spontaneous
  Country: ES (occurrence: ES)
  Receive Date: 20190305
  Receipt Date: 20190305
  Transmission Date: 20190418
  Serious: Yes (Hospitalization)
  Sender: FDA-Public Use
  Company Number: ES-ROCHE-2276096

PATIENT
  Age: 77 Year
  Sex: Male

DRUGS (12)
  1. SINTROM [Concomitant]
     Active Substance: ACENOCOUMAROL
     Dosage: 4MG DTS 13.5
     Route: 048
  2. TARDYFERON (SPAIN) [Concomitant]
     Active Substance: FERROUS SULFATE
     Dosage: 80MG CADA 24 HORAS (1-0-0)
     Route: 048
  3. ENALAPRIL [Concomitant]
     Active Substance: ENALAPRIL
     Dosage: 10MG CADA 24 HORAS (1-0-0)
     Route: 048
  4. ZARATOR [Concomitant]
     Active Substance: ATORVASTATIN CALCIUM
     Dosage: 40 MG CADA 24 HORAS (0-0-1)
     Route: 048
  5. PIRFENIDONE. [Suspect]
     Active Substance: PIRFENIDONE
     Indication: IDIOPATHIC PULMONARY FIBROSIS
     Route: 048
     Dates: start: 20181110, end: 20181123
  6. LORMETAZEPAM [Concomitant]
     Active Substance: LORMETAZEPAM
     Dosage: 1MG CADA 24 HORAS (0-0-1)
     Route: 048
  7. PANTOPRAZOL [Concomitant]
     Active Substance: PANTOPRAZOLE SODIUM
     Dosage: 20MG CADA 24 HORAS (1-0-0)
     Route: 048
  8. PIRFENIDONE. [Suspect]
     Active Substance: PIRFENIDONE
     Route: 048
     Dates: start: 20181026, end: 20181109
  9. SPIOLTO RESPIMAT [Concomitant]
     Active Substance: OLODATEROL HYDROCHLORIDE\TIOTROPIUM BROMIDE MONOHYDRATE
     Dosage: 2-0-0
     Route: 055
  10. SEGURIL [Concomitant]
     Active Substance: FUROSEMIDE
     Dosage: 40 MG CADA 24 HORAS (1-0-0)
     Route: 048
  11. PIRFENIDONE. [Suspect]
     Active Substance: PIRFENIDONE
     Route: 048
     Dates: start: 20181124, end: 20181215
  12. ALOPURINOL [Concomitant]
     Active Substance: ALLOPURINOL
     Dosage: 100MG CADA 24 HORAS (1-0-0)
     Route: 048

REACTIONS (1)
  - Cardiac failure [Recovered/Resolved]

NARRATIVE: CASE EVENT DATE: 20181215
